FAERS Safety Report 5268489-6 (Version None)
Quarter: 2007Q1

REPORT INFORMATION
  Report Type: 
  Country: None (occurrence: None)
  Receive Date: 20070319
  Receipt Date: 20070314
  Transmission Date: 20070707
  Serious: Yes (Death)
  Sender: FDA-Public Use
  Company Number: PHBS2007JP04573

PATIENT
  Age: 56 Year
  Sex: Male

DRUGS (3)
  1. NEORAL [Suspect]
     Indication: LIVER TRANSPLANT
     Dosage: 400 MG/D
     Route: 048
     Dates: start: 20060810, end: 20070101
  2. METHYLPREDNISOLONE 16MG TAB [Suspect]
     Indication: LIVER TRANSPLANT
     Dosage: 50 MG/D
     Route: 042
     Dates: start: 20060810, end: 20060816
  3. PREDNISOLONE [Suspect]
     Indication: LIVER TRANSPLANT
     Dosage: 15 MG/D
     Route: 048
     Dates: start: 20060817, end: 20061225

REACTIONS (2)
  - LUNG NEOPLASM MALIGNANT [None]
  - PLEURAL EFFUSION [None]
